FAERS Safety Report 8540676-0 (Version None)
Quarter: 2012Q3

REPORT INFORMATION
  Report Type: 
  Country: None (occurrence: None)
  Receive Date: 20120726
  Receipt Date: 20120719
  Transmission Date: 20120928
  Serious: Yes (Other)
  Sender: FDA-Public Use
  Company Number: US-UCBSA-058596

PATIENT
  Age: 19 Year
  Sex: Male
  Weight: 66.6 kg

DRUGS (10)
  1. OMEPRAZOLE [Concomitant]
     Dosage: DAILY DOSE: 40MG
  2. FEMARA [Concomitant]
  3. DEPAKOTE [Concomitant]
  4. LAMICTAL [Concomitant]
  5. PREDNISONE [Concomitant]
  6. SINGULAIR [Concomitant]
     Dosage: AT BEDTIME
  7. LAMICTAL [Concomitant]
  8. ATIVAN [Concomitant]
  9. CIMZIA [Suspect]
     Indication: CROHN'S DISEASE
     Route: 058
     Dates: start: 20110221, end: 20120530
  10. BENTYL [Concomitant]

REACTIONS (1)
  - EPILEPSY [None]
